FAERS Safety Report 13668477 (Version 1)
Quarter: 2017Q2

REPORT INFORMATION
  Report Type: Other
  Country: JP (occurrence: JP)
  Receive Date: 20170620
  Receipt Date: 20170620
  Transmission Date: 20170830
  Serious: Yes (Other)
  Sender: FDA-Public Use
  Company Number: JP-EMD SERONO-8163145

PATIENT
  Age: 9 Year
  Sex: Male

DRUGS (1)
  1. SAIZEN [Suspect]
     Active Substance: SOMATROPIN
     Indication: GROWTH HORMONE DEFICIENCY

REACTIONS (1)
  - Cerebrovascular accident [Recovered/Resolved]
